FAERS Safety Report 22532139 (Version 1)
Quarter: 2023Q2

REPORT INFORMATION
  Report Type: Spontaneous
  Country: MY (occurrence: MY)
  Receive Date: 20230607
  Receipt Date: 20230607
  Transmission Date: 20230722
  Serious: Yes (Death, Other)
  Sender: FDA-Public Use
  Company Number: MY-MYLANLABS-2023M1060346

PATIENT
  Age: 62 Year
  Sex: Female

DRUGS (8)
  1. PACLITAXEL [Suspect]
     Active Substance: PACLITAXEL
     Indication: Breast cancer recurrent
     Dosage: UNK
     Route: 065
  2. PACLITAXEL [Suspect]
     Active Substance: PACLITAXEL
     Indication: Breast cancer
  3. PACLITAXEL [Suspect]
     Active Substance: PACLITAXEL
     Indication: Phyllodes tumour
  4. PACLITAXEL [Suspect]
     Active Substance: PACLITAXEL
     Indication: Invasive breast carcinoma
  5. LETROZOLE [Suspect]
     Active Substance: LETROZOLE
     Indication: Breast cancer recurrent
     Dosage: UNK
     Route: 048
  6. LETROZOLE [Suspect]
     Active Substance: LETROZOLE
     Indication: Phyllodes tumour
  7. LETROZOLE [Suspect]
     Active Substance: LETROZOLE
     Indication: Invasive breast carcinoma
  8. LETROZOLE [Suspect]
     Active Substance: LETROZOLE
     Indication: Breast cancer

REACTIONS (2)
  - Drug ineffective [Fatal]
  - Disease progression [Unknown]
